FAERS Safety Report 4908470-7 (Version None)
Quarter: 2006Q1

REPORT INFORMATION
  Report Type: 
  Country: None (occurrence: None)
  Receive Date: 20060210
  Receipt Date: 20050722
  Transmission Date: 20060701
  Serious: No
  Sender: FDA-Public Use
  Company Number: US-GLAXOSMITHKLINE-A0567259A

PATIENT
  Age: 32 Year
  Sex: Female

DRUGS (3)
  1. PAXIL CR [Suspect]
     Indication: PANIC DISORDER
     Dosage: 25MG PER DAY
     Route: 048
     Dates: start: 20020101
  2. NO CONCURRENT MEDICATION [Concomitant]
  3. COPAXONE [Concomitant]

REACTIONS (2)
  - FATIGUE [None]
  - WEIGHT INCREASED [None]
